FAERS Safety Report 15980869 (Version 3)
Quarter: 2019Q1

REPORT INFORMATION
  Report Type: Spontaneous
  Country: US (occurrence: US)
  Receive Date: 20190219
  Receipt Date: 20190320
  Transmission Date: 20190418
  Serious: No
  Sender: FDA-Public Use
  Company Number: US-BIOMARINAP-US-2019-121997

PATIENT
  Sex: Female
  Weight: 19.41 kg

DRUGS (1)
  1. KUVAN [Suspect]
     Active Substance: SAPROPTERIN DIHYDROCHLORIDE
     Indication: PHENYLKETONURIA
     Dosage: 300 MILLIGRAM, QD
     Route: 048
     Dates: start: 201701

REACTIONS (7)
  - Anxiety [Unknown]
  - Crying [Unknown]
  - Muscle twitching [Unknown]
  - Social avoidant behaviour [Unknown]
  - Abnormal behaviour [Recovering/Resolving]
  - Mood swings [Unknown]
  - Separation anxiety disorder [Unknown]
